FAERS Safety Report 13290839 (Version 2)
Quarter: 2017Q1

REPORT INFORMATION
  Report Type: Spontaneous
  Country: US (occurrence: US)
  Receive Date: 20170303
  Receipt Date: 20170321
  Transmission Date: 20170428
  Serious: No
  Sender: FDA-Public Use
  Company Number: US-PFIZER INC-2017094635

PATIENT
  Age: 79 Year
  Sex: Female
  Weight: 80.27 kg

DRUGS (2)
  1. CYMBALTA [Suspect]
     Active Substance: DULOXETINE HYDROCHLORIDE
     Indication: SPONDYLITIS
  2. LYRICA [Suspect]
     Active Substance: PREGABALIN
     Indication: SPONDYLITIS

REACTIONS (3)
  - Drug ineffective for unapproved indication [Unknown]
  - Drug hypersensitivity [Unknown]
  - Malaise [Unknown]
